FAERS Safety Report 12416691 (Version 2)
Quarter: 2016Q2

REPORT INFORMATION
  Report Type: Spontaneous
  Country: AU (occurrence: AU)
  Receive Date: 20160530
  Receipt Date: 20160610
  Transmission Date: 20160815
  Serious: Yes (Other)
  Sender: FDA-Public Use
  Company Number: AU-JNJFOC-20151125055

PATIENT
  Age: 54 Year
  Sex: Male

DRUGS (2)
  1. RISPERDAL CONSTA [Suspect]
     Active Substance: RISPERIDONE
     Indication: SCHIZOPHRENIA
     Route: 050
  2. RISPERDAL CONSTA [Suspect]
     Active Substance: RISPERIDONE
     Indication: DELUSIONAL DISORDER, UNSPECIFIED TYPE
     Route: 050

REACTIONS (17)
  - Malaise [Unknown]
  - Mental disorder [Unknown]
  - Asthenia [Unknown]
  - Communication disorder [Recovered/Resolved]
  - Hypotonia [Unknown]
  - Sedation [Unknown]
  - Pallor [Recovered/Resolved]
  - Depression [Recovered/Resolved]
  - Nausea [Unknown]
  - Drug prescribing error [Unknown]
  - Off label use [Unknown]
  - Decreased appetite [Unknown]
  - Weight increased [Unknown]
  - Dysgeusia [Unknown]
  - Drug dependence [Recovered/Resolved]
  - Anxiety [Recovered/Resolved]
  - Drug withdrawal syndrome [Unknown]

NARRATIVE: CASE EVENT DATE: 201407
